FAERS Safety Report 22944014 (Version 2)
Quarter: 2024Q2

REPORT INFORMATION
  Report Type: Spontaneous
  Country: RO (occurrence: RO)
  Receive Date: 20230914
  Receipt Date: 20240430
  Transmission Date: 20240716
  Serious: Yes (Other)
  Sender: FDA-Public Use
  Company Number: RO-PFIZER INC-PV202300155086

PATIENT
  Age: 40 Year

DRUGS (4)
  1. PALBOCICLIB [Suspect]
     Active Substance: PALBOCICLIB
     Dosage: UNK
     Dates: start: 202011
  2. LETROZOLE [Suspect]
     Active Substance: LETROZOLE
     Dosage: UNK
     Dates: start: 202011
  3. GOSERELIN [Suspect]
     Active Substance: GOSERELIN
     Dosage: UNK
     Dates: start: 202011
  4. ZOLEDRONIC ACID [Suspect]
     Active Substance: ZOLEDRONIC ACID
     Dosage: UNK
     Dates: start: 202011, end: 202211

REACTIONS (8)
  - Neutropenia [Unknown]
  - Leukopenia [Unknown]
  - Osteonecrosis [Unknown]
  - Hepatic mass [Unknown]
  - Hilar lymphadenopathy [Unknown]
  - Inflammation [Unknown]
  - Empty sella syndrome [Unknown]
  - Lymphoedema [Unknown]
